FAERS Safety Report 6782446-X (Version None)
Quarter: 2010Q2

REPORT INFORMATION
  Report Type: 
  Country: None (occurrence: None)
  Receive Date: 20100520
  Receipt Date: 20090702
  Transmission Date: 20101027
  Serious: Yes (Disabling)
  Sender: FDA-Public Use
  Company Number: 2009236294

PATIENT
  Age: 55 Year
  Sex: Female

DRUGS (7)
  1. PROVERA [Suspect]
     Indication: HORMONE REPLACEMENT THERAPY
     Dosage: 2.5 MG, ORAL
     Route: 048
     Dates: start: 19940101, end: 19960101
  2. ESTROPIPATE [Suspect]
     Indication: HORMONE REPLACEMENT THERAPY
     Dosage: 0.625 MG, ORAL
     Route: 048
     Dates: start: 19940101, end: 19960101
  3. PREMPRO [Suspect]
     Indication: HORMONE REPLACEMENT THERAPY
     Dosage: 0.625/2.5MG
     Dates: start: 19960101, end: 20010101
  4. HYDROCHLOROTHIAZIDE [Concomitant]
  5. GLIPIZIDE [Concomitant]
  6. METFORMIN HCL [Concomitant]
  7. SYNTHROID [Concomitant]

REACTIONS (1)
  - BREAST CANCER FEMALE [None]
